FAERS Safety Report 5876186-9 (Version None)
Quarter: 2008Q3

REPORT INFORMATION
  Report Type: 
  Country: None (occurrence: None)
  Receive Date: 20080908
  Receipt Date: 20080908
  Transmission Date: 20090109
  Serious: Yes (Other)
  Sender: FDA-Public Use
  Company Number: None

PATIENT
  Age: 83 Year
  Sex: Male
  Weight: 77.5651 kg

DRUGS (1)
  1. ASMANEX TWISTHALER [Suspect]
     Indication: EMPHYSEMA
     Dosage: 1 PUFF EACH EVENING PO
     Route: 048
     Dates: start: 20070401, end: 20080907

REACTIONS (3)
  - COUGH [None]
  - DRY MOUTH [None]
  - DYSPHONIA [None]
